FAERS Safety Report 12892331 (Version 1)
Quarter: 2016Q4

REPORT INFORMATION
  Report Type: Spontaneous
  Country: US (occurrence: US)
  Receive Date: 20161027
  Receipt Date: 20161027
  Transmission Date: 20170207
  Serious: No
  Sender: FDA-Public Use
  Company Number: None

PATIENT
  Age: 74 Year
  Sex: Female
  Weight: 58.97 kg

DRUGS (10)
  1. CARVEDILOL. [Concomitant]
     Active Substance: CARVEDILOL
  2. CRANBERRY TABLETS [Concomitant]
  3. PROBIOTIC [Concomitant]
     Active Substance: PROBIOTICS NOS
  4. ATORVASTATIN [Concomitant]
     Active Substance: ATORVASTATIN
  5. DIALY VITAMINS [Concomitant]
  6. CALCIUM [Concomitant]
     Active Substance: CALCIUM
  7. LISINOPRIL. [Suspect]
     Active Substance: LISINOPRIL
     Indication: HYPERTENSION
     Route: 048
     Dates: start: 20160807, end: 20160813
  8. FISH OIL [Concomitant]
     Active Substance: FISH OIL
  9. COQ10 [Concomitant]
     Active Substance: UBIDECARENONE
  10. VITAMIN D [Concomitant]
     Active Substance: CHOLECALCIFEROL

REACTIONS (7)
  - Rash erythematous [None]
  - Swelling face [None]
  - Rash [None]
  - Rash pruritic [None]
  - Exfoliative rash [None]
  - Feeling hot [None]
  - Product substitution issue [None]

NARRATIVE: CASE EVENT DATE: 20160810
